FAERS Safety Report 18088328 (Version 1)
Quarter: 2020Q3

REPORT INFORMATION
  Report Type: Spontaneous
  Country: CN (occurrence: CN)
  Receive Date: 20200729
  Receipt Date: 20200729
  Transmission Date: 20201103
  Serious: Yes (Disabling)
  Sender: FDA-Public Use
  Company Number: CN-PFIZER INC-2020287684

PATIENT
  Age: 85 Year
  Sex: Male
  Weight: 65.5 kg

DRUGS (12)
  1. SPIRONOLACTONE. [Suspect]
     Active Substance: SPIRONOLACTONE
     Indication: OEDEMA PERIPHERAL
     Dosage: 40 MG, 1X/DAY EVERY MORNING
     Route: 048
     Dates: start: 20200701, end: 20200714
  2. QUETIAPINE FUMARATE. [Concomitant]
     Active Substance: QUETIAPINE FUMARATE
     Indication: DIABETIC NEUROPATHY
     Dosage: 0.1 G, 1X/DAY EVERY NIGHT
     Route: 048
     Dates: start: 20200707, end: 20200714
  3. CELEBREX [Suspect]
     Active Substance: CELECOXIB
     Indication: OSTEOPOROSIS
     Dosage: 0.2 G, 2X/DAY
     Route: 048
     Dates: start: 20200708, end: 20200714
  4. ADALAT [Concomitant]
     Active Substance: NIFEDIPINE
     Indication: HYPERTENSION
     Dosage: 30 MG, 1X/DAY EVERY MORNING
     Route: 048
     Dates: start: 20200630, end: 20200723
  5. CLOPIDOGREL BISULFATE. [Concomitant]
     Active Substance: CLOPIDOGREL BISULFATE
     Indication: LACUNAR INFARCTION
     Dosage: 75 MG, 1X/DAY
     Route: 048
     Dates: start: 20200630, end: 20200714
  6. MIAO NA [Suspect]
     Active Substance: EPERISONE HYDROCHLORIDE
     Indication: OSTEOPOROSIS
     Dosage: 50 MG, 3X/DAY
     Route: 048
     Dates: start: 20200703, end: 20200714
  7. QUETIAPINE FUMARATE. [Concomitant]
     Active Substance: QUETIAPINE FUMARATE
     Indication: MENTAL DISORDER
  8. PIPERAZINE FERULATE [Concomitant]
     Indication: DIABETIC NEPHROPATHY
     Dosage: 100 MG, 3X/DAY
     Route: 048
     Dates: start: 20200630, end: 20200715
  9. LIPITOR [Concomitant]
     Active Substance: ATORVASTATIN CALCIUM
     Indication: LACUNAR INFARCTION
     Dosage: 20 MG, 1X/DAY EVERY NIGHT
     Route: 048
     Dates: start: 20200630, end: 20200715
  10. ONGLYZA [Concomitant]
     Active Substance: SAXAGLIPTIN HYDROCHLORIDE
     Indication: TYPE 2 DIABETES MELLITUS
     Dosage: 5 MG, 1X/DAY
     Route: 048
     Dates: start: 20200630, end: 20200715
  11. FUROSEMIDE. [Suspect]
     Active Substance: FUROSEMIDE
     Indication: OEDEMA PERIPHERAL
     Dosage: 20 MG, 1X/DAY EVERY MORNING
     Route: 048
     Dates: start: 20200701, end: 20200714
  12. INSULIN [Concomitant]
     Active Substance: INSULIN NOS
     Indication: BLOOD GLUCOSE ABNORMAL

REACTIONS (4)
  - Off label use [Unknown]
  - Hyperuricaemia [Recovering/Resolving]
  - Renal impairment [Recovering/Resolving]
  - Product use in unapproved indication [Unknown]

NARRATIVE: CASE EVENT DATE: 20200708
